FAERS Safety Report 6019870-9 (Version None)
Quarter: 2008Q4

REPORT INFORMATION
  Report Type: 
  Country: None (occurrence: None)
  Receive Date: 20081224
  Receipt Date: 20081218
  Transmission Date: 20090506
  Serious: Yes (Other)
  Sender: FDA-Public Use
  Company Number: IT-GENENTECH-274337

PATIENT

DRUGS (3)
  1. MABTHERA [Suspect]
     Indication: DIFFUSE LARGE B-CELL LYMPHOMA
     Dosage: 375 MG/M2, UNK
  2. ANTIBIOTIC (UNK INGREDIENTS) [Concomitant]
     Indication: PROPHYLAXIS
  3. ANTIFUNGAL [Concomitant]
     Indication: PROPHYLAXIS

REACTIONS (1)
  - ANAL ABSCESS [None]
